FAERS Safety Report 8809148 (Version 1)
Quarter: 2012Q4

REPORT INFORMATION
  Report Type: Spontaneous
  Country: US (occurrence: None)
  Receive Date: 20120921
  Receipt Date: 20120921
  Transmission Date: 20130627
  Serious: Yes (Other)
  Sender: FDA-Public Use
  Company Number: None

PATIENT
  Age: 56 Year
  Sex: Male
  Weight: 117.94 kg

DRUGS (1)
  1. MIRAPEX [Suspect]
     Indication: RESTLESS LEG SYNDROME
     Dosage: 0.5 nightlt po
     Route: 048
     Dates: start: 20050202, end: 20081030

REACTIONS (8)
  - Compulsive shopping [None]
  - Mental disorder [None]
  - Insomnia [None]
  - Major depression [None]
  - Obsessive-compulsive personality disorder [None]
  - Anxiety disorder [None]
  - Pain [None]
  - Economic problem [None]
